FAERS Safety Report 13388944 (Version 1)
Quarter: 2017Q1

REPORT INFORMATION
  Report Type: Spontaneous
  Country: ES (occurrence: ES)
  Receive Date: 20170330
  Receipt Date: 20170330
  Transmission Date: 20170429
  Serious: Yes (Other)
  Sender: FDA-Public Use
  Company Number: ES-SA-2017SA049566

PATIENT
  Age: 0 Day
  Sex: Female
  Weight: 2.84 kg

DRUGS (5)
  1. HUMALOG [Suspect]
     Active Substance: INSULIN LISPRO
     Indication: FOETAL EXPOSURE DURING PREGNANCY
     Route: 064
     Dates: end: 20160809
  2. HUMALOG [Suspect]
     Active Substance: INSULIN LISPRO
     Indication: FOETAL EXPOSURE DURING PREGNANCY
     Route: 063
     Dates: start: 20160809, end: 20161101
  3. LANTUS [Suspect]
     Active Substance: INSULIN GLARGINE
     Indication: FOETAL EXPOSURE DURING PREGNANCY
     Route: 064
     Dates: end: 20160809
  4. HUMALOG [Suspect]
     Active Substance: INSULIN LISPRO
     Indication: EXPOSURE DURING BREAST FEEDING
     Route: 064
     Dates: end: 20160809
  5. HUMALOG [Suspect]
     Active Substance: INSULIN LISPRO
     Indication: EXPOSURE DURING BREAST FEEDING
     Route: 063
     Dates: start: 20160809, end: 20161101

REACTIONS (2)
  - Hypoglycaemia neonatal [Recovered/Resolved]
  - Foetal exposure during pregnancy [Unknown]

NARRATIVE: CASE EVENT DATE: 20160809
